FAERS Safety Report 7800141-2 (Version None)
Quarter: 2011Q4

REPORT INFORMATION
  Report Type: 
  Country: None (occurrence: None)
  Receive Date: 20111006
  Receipt Date: 20111003
  Transmission Date: 20120403
  Serious: Yes (Disabling)
  Sender: FDA-Public Use
  Company Number: US-ROXANE LABORATORIES, INC.-2011-RO-00112RO

PATIENT
  Sex: Female
  Weight: 80 kg

DRUGS (13)
  1. PREDNISONE [Suspect]
     Route: 048
  2. INDERAL [Concomitant]
     Indication: MITRAL VALVE PROLAPSE
     Dosage: 80 MG
     Dates: start: 19790101
  3. PERSEA [Concomitant]
     Indication: TEMPORAL ARTERITIS
     Dates: start: 20110401
  4. KLOR-CON [Concomitant]
  5. AMLODIPINE BESYLATE [Concomitant]
  6. XANAX [Concomitant]
     Indication: ANXIETY
     Dates: start: 19790101
  7. PREDNISONE [Suspect]
     Route: 048
     Dates: start: 20100609
  8. PREDNISONE [Suspect]
     Indication: TEMPORAL ARTERITIS
     Dosage: 9 MG
     Route: 048
  9. VITAMIN D [Concomitant]
  10. EFFEXOR XR [Concomitant]
  11. PREDNISONE [Suspect]
     Dosage: 7 MG
     Route: 048
     Dates: start: 20110301
  12. ASCORBIC ACID [Concomitant]
  13. NATURAL POTASSIUM [Concomitant]

REACTIONS (9)
  - WEIGHT INCREASED [None]
  - DIARRHOEA [None]
  - ALOPECIA [None]
  - ONYCHOMADESIS [None]
  - ABDOMINAL DISCOMFORT [None]
  - DYSURIA [None]
  - BLINDNESS [None]
  - PAIN [None]
  - ASTHENIA [None]
